FAERS Safety Report 24793691 (Version 2)
Quarter: 2025Q1

REPORT INFORMATION
  Report Type: Spontaneous
  Country: GB (occurrence: GB)
  Receive Date: 20241231
  Receipt Date: 20250107
  Transmission Date: 20250408
  Serious: Yes (Other)
  Sender: MYLAN
  Company Number: GB-Merck Healthcare KGaA-2024067565

PATIENT
  Sex: Female

DRUGS (2)
  1. DOXAZOSIN [Suspect]
     Active Substance: DOXAZOSIN MESYLATE
     Indication: Product used for unknown indication
     Route: 065
  2. REBIF [Suspect]
     Active Substance: INTERFERON BETA-1A
     Indication: Multiple sclerosis
     Dosage: 44 MICROGRAM, 3XW (3 EVERY 1 WEEK)
     Route: 058
     Dates: start: 20081010

REACTIONS (1)
  - Renal impairment [Recovering/Resolving]
